FAERS Safety Report 9682230 (Version 1)
Quarter: 2013Q4

REPORT INFORMATION
  Report Type: Spontaneous
  Country: SE (occurrence: SE)
  Receive Date: 20131112
  Receipt Date: 20131112
  Transmission Date: 20140711
  Serious: Yes (Hospitalization)
  Sender: FDA-Public Use
  Company Number: SE-JNJFOC-20131018625

PATIENT
  Age: 11 Year
  Sex: Male

DRUGS (2)
  1. IPREN [Suspect]
     Indication: PROCEDURAL PAIN
     Route: 065
     Dates: start: 201309
  2. ALVEDON [Concomitant]
     Indication: PROCEDURAL PAIN
     Route: 048
     Dates: start: 201309

REACTIONS (1)
  - Renal failure acute [Recovered/Resolved]
